FAERS Safety Report 4917375-7 (Version None)
Quarter: 2006Q1

REPORT INFORMATION
  Report Type: 
  Country: None (occurrence: None)
  Receive Date: 20060221
  Receipt Date: 20060216
  Transmission Date: 20060701
  Serious: Yes (Hospitalization)
  Sender: FDA-Public Use
  Company Number: CA-GLAXOSMITHKLINE-A0594028A

PATIENT
  Age: 5 Year
  Sex: Female

DRUGS (3)
  1. ADVAIR DISKUS 100/50 [Suspect]
     Indication: ASTHMA
     Dosage: 2PUFF SINGLE DOSE
     Route: 055
     Dates: start: 20060214, end: 20060214
  2. FLOVENT [Concomitant]
     Indication: ASTHMA
  3. VENTOLIN [Concomitant]
     Indication: ASTHMA

REACTIONS (6)
  - APHASIA [None]
  - COUGH [None]
  - DYSPHONIA [None]
  - DYSPNOEA [None]
  - LARYNGITIS [None]
  - PHARYNGITIS [None]
